FAERS Safety Report 22591704 (Version 1)
Quarter: 2023Q2

REPORT INFORMATION
  Report Type: Spontaneous
  Country: US (occurrence: US)
  Receive Date: 20230612
  Receipt Date: 20230612
  Transmission Date: 20230722
  Serious: No
  Sender: FDA-Public Use
  Company Number: US-RIGEL Pharmaceuticals, INC-2022FOS000958

PATIENT
  Sex: Female

DRUGS (1)
  1. TAVALISSE [Suspect]
     Active Substance: FOSTAMATINIB
     Indication: Thrombocytopenia
     Dosage: 100 MG, BID
     Route: 048
     Dates: start: 2022

REACTIONS (9)
  - Platelet count decreased [Unknown]
  - White blood cell count decreased [Unknown]
  - Haemoglobin decreased [Unknown]
  - Malaise [Unknown]
  - Nasopharyngitis [Unknown]
  - Abdominal pain upper [Unknown]
  - Diarrhoea [Unknown]
  - Off label use [Unknown]
  - Drug ineffective for unapproved indication [Unknown]

NARRATIVE: CASE EVENT DATE: 20220101
